FAERS Safety Report 25930722 (Version 1)
Quarter: 2025Q4

REPORT INFORMATION
  Report Type: Spontaneous
  Country: EU (occurrence: EU)
  Receive Date: 20251016
  Receipt Date: 20251016
  Transmission Date: 20260118
  Serious: Yes (Other)
  Sender: FRESENIUS KABI
  Company Number: None

PATIENT
  Age: 34 Year
  Sex: Female

DRUGS (4)
  1. PROPOFOL [Suspect]
     Active Substance: PROPOFOL
     Indication: Induction of anaesthesia
     Dosage: PROPOFOL 150 MG INTRAVENOUSLY?FOA: EMULSION FOR INJECTION/INFUSION
     Route: 042
     Dates: start: 20241012, end: 20241012
  2. MIDAZOLAM [Suspect]
     Active Substance: MIDAZOLAM
     Indication: Induction of anaesthesia
     Dosage: MIDAZOLAM 2MG INTRAVENOUS?FOA: SOLUTION FOR INJECTION
     Route: 042
     Dates: start: 20241012, end: 20241012
  3. FENTANYL CITRATE [Suspect]
     Active Substance: FENTANYL CITRATE
     Indication: Induction of anaesthesia
     Dosage: FENTANEST 50MG INTRAVENOUSLY?FOA: SOLUTION FOR INJECTION
     Route: 042
     Dates: start: 20241012, end: 20241012
  4. SEVOFLURANE [Suspect]
     Active Substance: SEVOFLURANE
     Indication: Induction of anaesthesia
     Dosage: SEVORANE 2% INHALED FOR INDUCTION OF ANESTHESIA?FOA: PRESSURISED INHALATION, SOLUTION
     Route: 055
     Dates: start: 20241012, end: 20241012

REACTIONS (4)
  - Face oedema [Recovered/Resolved]
  - Periorbital oedema [Recovered/Resolved]
  - Lymphadenopathy [Recovered/Resolved]
  - Hypoaesthesia [Recovered/Resolved]

NARRATIVE: CASE EVENT DATE: 20241012
